FAERS Safety Report 6984590-0 (Version None)
Quarter: 2010Q3

REPORT INFORMATION
  Report Type: 
  Country: None (occurrence: None)
  Receive Date: 20100915
  Receipt Date: 20100907
  Transmission Date: 20110219
  Serious: Yes (Life-Threatening, Hospitalization)
  Sender: FDA-Public Use
  Company Number: FR-PFIZER INC-2010112773

PATIENT
  Age: 85 Year
  Sex: Female

DRUGS (9)
  1. AMLODIPINE [Suspect]
     Dosage: 5 MG, 1X/DAY
     Route: 048
  2. FOSAVANCE [Suspect]
     Indication: OSTEOPOROSIS
     Dosage: 1 DF, WEEKLY
     Route: 048
     Dates: start: 20080811, end: 20100226
  3. ATHYMIL [Concomitant]
     Dosage: 30 MG, 1X/DAY
     Route: 048
  4. FORLAX [Concomitant]
     Dosage: 10 G, 1X/DAY
     Route: 048
  5. MEMANTINE [Concomitant]
     Dosage: 20 MG, 1X/DAY
     Route: 048
  6. ARICEPT [Concomitant]
     Dosage: 10 MG, 1X/DAY
     Route: 048
  7. EQUANIL [Concomitant]
     Dosage: 250 MG, 1X/DAY
     Route: 048
  8. XANAX [Concomitant]
     Dosage: 0.625 MG, 1X/DAY
     Route: 048
  9. NEXIUM [Concomitant]
     Dosage: 40 MG, 1X/DAY
     Route: 048

REACTIONS (2)
  - MELAENA [None]
  - OESOPHAGITIS [None]
